FAERS Safety Report 25530020 (Version 1)
Quarter: 2025Q3

REPORT INFORMATION
  Report Type: Spontaneous
  Country: US (occurrence: None)
  Receive Date: 20250708
  Receipt Date: 20250708
  Transmission Date: 20251020
  Serious: Yes (Hospitalization)
  Sender: FDA-CTU
  Company Number: None

PATIENT
  Age: 72 Year
  Sex: Male

DRUGS (10)
  1. MYCOPHENOLIC ACID [Suspect]
     Active Substance: MYCOPHENOLIC ACID
     Indication: Renal transplant
     Dosage: 360 MG TWICE A DAY ORAL
     Route: 048
     Dates: start: 20220308
  2. TACROLIMUS [Suspect]
     Active Substance: TACROLIMUS
     Indication: Renal transplant
     Dosage: 2 MG TWICE A DAY ORAL ;?
     Route: 048
     Dates: start: 20220407
  3. AMIODARONE [Concomitant]
     Active Substance: AMIODARONE
  4. FINASTERIDE [Concomitant]
     Active Substance: FINASTERIDE
  5. Breztri aero sphere inhaler [Concomitant]
  6. Eliquis 2.5 mg tablet [Concomitant]
  7. ALBUTEROL [Concomitant]
     Active Substance: ALBUTEROL
  8. calcitriol 0.5 mcg capsule [Concomitant]
  9. vitamin D 1,000 IU softgels [Concomitant]
  10. bumetanide 1 mg tablet [Concomitant]

REACTIONS (1)
  - Transplantation complication [None]

NARRATIVE: CASE EVENT DATE: 20250528
